FAERS Safety Report 6021552-4 (Version None)
Quarter: 2008Q4

REPORT INFORMATION
  Report Type: 
  Country: None (occurrence: None)
  Receive Date: 20081229
  Receipt Date: 20081217
  Transmission Date: 20090506
  Serious: Yes (Hospitalization)
  Sender: FDA-Public Use
  Company Number: PHHY2008GB29774

PATIENT
  Sex: Male

DRUGS (5)
  1. CLOZARIL [Suspect]
     Indication: SCHIZOPHRENIA
     Dosage: 150 MG, BID
     Route: 048
     Dates: start: 20060505
  2. CITALOPRAM [Concomitant]
     Dosage: 20 MG, QD
  3. LANSOPRAZOLE [Concomitant]
     Dosage: 300 MG, QD
  4. ZOPICLONE [Concomitant]
     Dosage: 3.75 MG, QD
  5. HYOSCINE HBR HYT [Concomitant]
     Dosage: 300 UG, QD

REACTIONS (1)
  - INTENTIONAL SELF-INJURY [None]
